FAERS Safety Report 4292139-9 (Version None)
Quarter: 2004Q1

REPORT INFORMATION
  Report Type: 
  Country: None (occurrence: None)
  Receive Date: 20040211
  Receipt Date: 20031215
  Transmission Date: 20041129
  Serious: No
  Sender: FDA-Public Use
  Company Number: US-GLAXOSMITHKLINE-A0443212A

PATIENT
  Age: 35 Year
  Sex: Female

DRUGS (5)
  1. LAMICTAL [Suspect]
     Dosage: 100MG PER DAY
     Route: 048
  2. PAXIL [Concomitant]
  3. ALLEGRA-D [Concomitant]
  4. SINGULAIR [Concomitant]
  5. MULTIVITAMIN [Concomitant]

REACTIONS (3)
  - ALOPECIA [None]
  - ANXIETY [None]
  - PANIC ATTACK [None]
